FAERS Safety Report 16648112 (Version 1)
Quarter: 2019Q3

REPORT INFORMATION
  Report Type: Spontaneous
  Country: US (occurrence: US)
  Receive Date: 20190617
  Receipt Date: 20190617
  Transmission Date: 20191004
  Serious: Yes (Death)
  Sender: FDA-Public Use
  Company Number: None

PATIENT
  Age: 81 Year
  Sex: Male

DRUGS (13)
  1. RANITIDINE. [Concomitant]
     Active Substance: RANITIDINE
  2. LIPITOR [Concomitant]
     Active Substance: ATORVASTATIN CALCIUM
  3. ACYCLOVIR. [Concomitant]
     Active Substance: ACYCLOVIR
  4. ASPIRIN. [Concomitant]
     Active Substance: ASPIRIN
  5. NOXAFIL [Suspect]
     Active Substance: POSACONAZOLE
     Indication: LYMPHOCYTIC LEUKAEMIA
     Route: 048
  6. VENTOLIN [Concomitant]
     Active Substance: ALBUTEROL SULFATE
  7. VENETOCLAX. [Concomitant]
     Active Substance: VENETOCLAX
  8. ALLOPURINOL. [Concomitant]
     Active Substance: ALLOPURINOL
  9. AZITHROMYCIN ANHYDROUS. [Concomitant]
     Active Substance: AZITHROMYCIN ANHYDROUS
  10. HYDEOXYUREA [Concomitant]
  11. TAMSULOSIN [Concomitant]
     Active Substance: TAMSULOSIN
  12. ALLUPRUINOL [Concomitant]
  13. FINASTERIDE. [Concomitant]
     Active Substance: FINASTERIDE

REACTIONS (1)
  - Death [None]
